FAERS Safety Report 14305970 (Version 1)
Quarter: 2017Q4

REPORT INFORMATION
  Report Type: Spontaneous
  Country: US (occurrence: US)
  Receive Date: 20171219
  Receipt Date: 20171219
  Transmission Date: 20180321
  Serious: No
  Sender: FDA-Public Use
  Company Number: US-PFIZER INC-2017536513

PATIENT
  Age: 65 Year
  Sex: Female
  Weight: 68.4 kg

DRUGS (6)
  1. GABAPENTIN. [Suspect]
     Active Substance: GABAPENTIN
     Indication: NEUROPATHY PERIPHERAL
     Dosage: 800 MG, 2X/DAY
     Route: 048
  2. LYRICA [Suspect]
     Active Substance: PREGABALIN
     Indication: NEUROPATHY PERIPHERAL
     Dosage: ONE CAPSULE A DAY FOR A WEEK
     Dates: start: 2015
  3. LYRICA [Suspect]
     Active Substance: PREGABALIN
     Dosage: ON WEEK 3 SHE JUST TOOK LYRICA
  4. LYRICA [Suspect]
     Active Substance: PREGABALIN
     Dosage: 75 MG, 3X/DAY
     Dates: start: 201711
  5. GABAPENTIN. [Suspect]
     Active Substance: GABAPENTIN
     Dosage: ONE 800MG TABLET (ON WEEK 2)
  6. LYRICA [Suspect]
     Active Substance: PREGABALIN
     Indication: PARAESTHESIA
     Dosage: ON WEEK 2 SHE TOOK 2 LYRICA CAPSULES A DAY

REACTIONS (5)
  - Dizziness [Recovered/Resolved]
  - Head discomfort [Unknown]
  - Nervousness [Unknown]
  - Nausea [Recovered/Resolved]
  - Malaise [Unknown]

NARRATIVE: CASE EVENT DATE: 2015
